FAERS Safety Report 8473868-X (Version None)
Quarter: 2012Q2

REPORT INFORMATION
  Report Type: 
  Country: None (occurrence: None)
  Receive Date: 20120628
  Receipt Date: 20120312
  Transmission Date: 20120825
  Serious: Yes (Other)
  Sender: FDA-Public Use
  Company Number: US-MYLANLABS-2012S1000295

PATIENT
  Age: 37 Year
  Sex: Male
  Weight: 83.01 kg

DRUGS (11)
  1. CLOZAPINE [Suspect]
     Indication: SCHIZOAFFECTIVE DISORDER
     Route: 048
     Dates: start: 20110604
  2. GLUCOPHAGE [Concomitant]
     Indication: DIABETES MELLITUS
  3. NEURONTIN [Concomitant]
  4. HALDOL [Concomitant]
  5. ATIVAN [Concomitant]
  6. GEODON [Concomitant]
     Indication: BIPOLAR DISORDER
  7. GLYBURIDE [Concomitant]
     Indication: DIABETES MELLITUS
  8. CLOZAPINE [Suspect]
     Route: 048
     Dates: end: 20120123
  9. CYMBALTA [Concomitant]
     Indication: BIPOLAR DISORDER
  10. MAALOX /00108001/ [Concomitant]
     Indication: DYSPEPSIA
  11. DEPAKOTE [Concomitant]

REACTIONS (1)
  - GRANULOCYTOPENIA [None]
